FAERS Safety Report 11587712 (Version 2)
Quarter: 2016Q3

REPORT INFORMATION
  Report Type: Spontaneous
  Country: US (occurrence: US)
  Receive Date: 20151001
  Receipt Date: 20160912
  Transmission Date: 20161109
  Serious: No
  Sender: FDA-Public Use
  Company Number: US-GLAXOSMITHKLINE-US2015GSK122566

PATIENT
  Age: 67 Year
  Sex: Female

DRUGS (2)
  1. BECONASE AQ [Suspect]
     Active Substance: BECLOMETHASONE DIPROPIONATE MONOHYDRATE
     Indication: PRODUCT USED FOR UNKNOWN INDICATION
     Dosage: UNK, U
     Route: 065
  2. BECLOMETHASONE DIPROPIONATE NASAL SPRAY [Suspect]
     Active Substance: BECLOMETHASONE DIPROPIONATE
     Indication: PRODUCT USED FOR UNKNOWN INDICATION
     Dosage: UNK, U

REACTIONS (4)
  - Coronary artery disease [Unknown]
  - Sinusitis [Unknown]
  - Circumstance or information capable of leading to medication error [Unknown]
  - Product supply issue [Unknown]

NARRATIVE: CASE EVENT DATE: 2011
